FAERS Safety Report 6985542-7 (Version None)
Quarter: 2010Q3

REPORT INFORMATION
  Report Type: 
  Country: None (occurrence: None)
  Receive Date: 20100915
  Receipt Date: 20100913
  Transmission Date: 20110219
  Serious: Yes (Other)
  Sender: FDA-Public Use
  Company Number: DE-GILEAD-2010-0031142

PATIENT
  Sex: Male
  Weight: 75 kg

DRUGS (4)
  1. VIREAD [Suspect]
     Indication: HEPATITIS B
     Route: 048
     Dates: start: 20081219
  2. HEPSERA [Concomitant]
     Indication: HEPATITIS B
     Dates: start: 20070201, end: 20080301
  3. HEPSERA [Concomitant]
     Dates: start: 20080301, end: 20081201
  4. ENTECAVIR [Concomitant]
     Dates: start: 20080301, end: 20081201

REACTIONS (3)
  - ALANINE AMINOTRANSFERASE INCREASED [None]
  - DRUG INEFFECTIVE [None]
  - VIRAL LOAD INCREASED [None]
